FAERS Safety Report 9151932 (Version 1)
Quarter: 2013Q1

REPORT INFORMATION
  Report Type: Report from Study
  Country: BR (occurrence: BR)
  Receive Date: 20130308
  Receipt Date: 20130308
  Transmission Date: 20140127
  Serious: Yes (Hospitalization)
  Sender: FDA-Public Use
  Company Number: BR-BAYER-2013-029775

PATIENT
  Age: 19 Year
  Sex: Male

DRUGS (4)
  1. BETAFERON [Suspect]
     Indication: MULTIPLE SCLEROSIS
     Dosage: 1 ML, TIW
     Route: 058
     Dates: start: 201112, end: 201301
  2. ZOLOFT [Concomitant]
     Indication: DEPRESSION
     Dosage: 50 MG, QD
     Route: 048
     Dates: start: 201301
  3. PAMELOR [Concomitant]
     Indication: DEPRESSION
     Dosage: 50 MG, QD
     Route: 048
     Dates: start: 201301
  4. SOFIAN [Concomitant]
     Indication: DEPRESSION
     Dosage: 25 MG, QD
     Route: 048
     Dates: start: 201301

REACTIONS (4)
  - Multiple sclerosis relapse [Recovered/Resolved]
  - Hypoaesthesia [Recovered/Resolved]
  - Motor dysfunction [Recovered/Resolved]
  - Formication [Recovered/Resolved]
